FAERS Safety Report 4883735-6 (Version None)
Quarter: 2006Q1

REPORT INFORMATION
  Report Type: 
  Country: None (occurrence: None)
  Receive Date: 20060118
  Receipt Date: 20060109
  Transmission Date: 20060701
  Serious: Yes (Life-Threatening)
  Sender: FDA-Public Use
  Company Number: AU-ROCHE-431079

PATIENT
  Age: 73 Year
  Sex: Male

DRUGS (6)
  1. ROCEPHIN [Suspect]
     Route: 065
     Dates: start: 20041001, end: 20041001
  2. PANTOPRAZOLE [Concomitant]
     Indication: DUODENAL ULCER
     Dosage: LONGTERM TREATMENT.
  3. FRUSEMIDE [Concomitant]
     Dosage: LONGTERM TREATMENT.
  4. DIGOXIN [Concomitant]
     Dosage: LONGTERM TREATMENT.
     Route: 048
  5. THYROXINE SODIUM [Concomitant]
     Dosage: LONGTERM TREATMENT.
     Route: 048
  6. OXYCONTIN [Concomitant]
     Indication: PAIN
     Dosage: LONGTERM TREATMENT.

REACTIONS (4)
  - BLOOD PRESSURE DECREASED [None]
  - DYSPNOEA [None]
  - HYPOXIA [None]
  - PARAESTHESIA [None]
